FAERS Safety Report 21551760 (Version 2)
Quarter: 2023Q1

REPORT INFORMATION
  Report Type: Report from Study
  Country: US (occurrence: US)
  Receive Date: 20221104
  Receipt Date: 20230116
  Transmission Date: 20230417
  Serious: No
  Sender: FDA-Public Use
  Company Number: US-ABBVIE-21K-163-4098153-00

PATIENT
  Sex: Female

DRUGS (6)
  1. HUMIRA [Suspect]
     Active Substance: ADALIMUMAB
     Indication: Colitis ulcerative
     Dosage: CITRATE FREE, DAY 29, FORM STRENGTH: 40 MG
     Route: 058
     Dates: start: 20211022, end: 20211022
  2. HUMIRA [Suspect]
     Active Substance: ADALIMUMAB
     Dosage: FORM STRENGTH 40 MILLIGRAM
     Route: 058
     Dates: start: 202110
  3. HUMIRA [Suspect]
     Active Substance: ADALIMUMAB
     Dosage: CITRATE FREE?ONE IN ONCE?DAY 1
     Route: 058
     Dates: start: 20210924, end: 20210924
  4. HUMIRA [Suspect]
     Active Substance: ADALIMUMAB
     Dosage: FORM STRENGTH: 40 MG
     Route: 058
     Dates: start: 202210
  5. HUMIRA [Suspect]
     Active Substance: ADALIMUMAB
     Dosage: CITRATE FREE?ONE IN ONCE?DAY 15
     Route: 058
     Dates: start: 20211008, end: 20211008
  6. PFIZER-BIONTECH COVID-19 VACCINE [Concomitant]
     Active Substance: TOZINAMERAN
     Indication: COVID-19 immunisation
     Dosage: ONE IN ONCE
     Route: 030

REACTIONS (15)
  - Insomnia [Unknown]
  - Rectal spasm [Unknown]
  - Photosensitivity reaction [Recovered/Resolved]
  - Malaise [Unknown]
  - Anxiety [Unknown]
  - Colitis ulcerative [Unknown]
  - Colitis [Unknown]
  - Frequent bowel movements [Recovering/Resolving]
  - Decreased appetite [Unknown]
  - Abdominal distension [Unknown]
  - COVID-19 [Recovered/Resolved]
  - Flatulence [Unknown]
  - Adverse food reaction [Unknown]
  - Constipation [Recovered/Resolved]
  - Depressed mood [Unknown]
